FAERS Safety Report 9719219 (Version 3)
Quarter: 2015Q3

REPORT INFORMATION
  Report Type: Spontaneous
  Country: US (occurrence: US)
  Receive Date: 20131127
  Receipt Date: 20150811
  Transmission Date: 20151125
  Serious: Yes (Other)
  Sender: FDA-Public Use
  Company Number: PHEH2013US024506

PATIENT
  Sex: Male

DRUGS (2)
  1. TEKTURNA [Suspect]
     Active Substance: ALISKIREN HEMIFUMARATE
     Indication: PRODUCT USED FOR UNKNOWN INDICATION
     Dosage: 150 TO 300 MG, QD
     Route: 065
     Dates: start: 200812, end: 201103
  2. COZAAR [Concomitant]
     Active Substance: LOSARTAN POTASSIUM
     Indication: PRODUCT USED FOR UNKNOWN INDICATION
     Dosage: UNK
     Route: 065

REACTIONS (49)
  - Chronic kidney disease [Unknown]
  - Myalgia [Unknown]
  - Osteoarthritis [Unknown]
  - Sinus bradycardia [Unknown]
  - Malaise [Unknown]
  - Rhinitis allergic [Unknown]
  - Injury [Unknown]
  - Nasal congestion [Unknown]
  - Spinal osteoarthritis [Unknown]
  - Bronchitis [Unknown]
  - Organic erectile dysfunction [Unknown]
  - Diverticulum [Unknown]
  - Hypotension [Unknown]
  - Disability [Unknown]
  - Hearing impaired [Unknown]
  - Renal impairment [Unknown]
  - Anxiety [Unknown]
  - Hyperlipidaemia [Unknown]
  - Arrhythmia [Unknown]
  - Hypogonadism [Unknown]
  - Ischaemic cerebral infarction [Unknown]
  - Blood potassium increased [Unknown]
  - Anhedonia [Unknown]
  - Asthma [Unknown]
  - Weight increased [Unknown]
  - Feeling cold [Unknown]
  - Cardiac disorder [Unknown]
  - Sleep disorder [Unknown]
  - Sinus tachycardia [Unknown]
  - Rectal haemorrhage [Unknown]
  - Vertigo [Unknown]
  - Nasal septum deviation [Unknown]
  - Ear pain [Unknown]
  - Pollakiuria [Unknown]
  - Granuloma [Unknown]
  - Arthralgia [Unknown]
  - Cerebrovascular accident [Unknown]
  - Deafness bilateral [Unknown]
  - Tinnitus [Unknown]
  - Pain [Unknown]
  - Eye pruritus [Unknown]
  - Exostosis [Unknown]
  - Dyslipidaemia [Unknown]
  - Cardiomegaly [Unknown]
  - Otorrhoea [Unknown]
  - Epigastric discomfort [Unknown]
  - Benign mediastinal neoplasm [Unknown]
  - Hypertension [Unknown]
  - Gastrooesophageal reflux disease [Unknown]

NARRATIVE: CASE EVENT DATE: 2009
